FAERS Safety Report 7635166-3 (Version None)
Quarter: 2011Q3

REPORT INFORMATION
  Report Type: 
  Country: None (occurrence: None)
  Receive Date: 20110726
  Receipt Date: 20110714
  Transmission Date: 20111222
  Serious: Yes (Hospitalization, Other)
  Sender: FDA-Public Use
  Company Number: US-BAYER-2011-019372

PATIENT
  Age: 25 Year
  Sex: Female
  Weight: 113.38 kg

DRUGS (3)
  1. ALBUTEROL SULFATE AUTOHALER [Concomitant]
     Dosage: UNK
     Route: 035
     Dates: start: 20070504
  2. YASMIN [Suspect]
     Dosage: UNK
     Route: 048
     Dates: start: 20061215, end: 20090305
  3. EXCEDRIN (MIGRAINE) [Concomitant]
     Indication: MIGRAINE

REACTIONS (5)
  - PAIN [None]
  - CHOLELITHIASIS [None]
  - ANXIETY [None]
  - CHOLECYSTITIS CHRONIC [None]
  - INJURY [None]
